FAERS Safety Report 17265588 (Version 1)
Quarter: 2020Q1

REPORT INFORMATION
  Report Type: Spontaneous
  Country: US (occurrence: US)
  Receive Date: 20200114
  Receipt Date: 20200114
  Transmission Date: 20200409
  Serious: No
  Sender: FDA-Public Use
  Company Number: US-SHIRE-US201942777

PATIENT
  Age: 83 Year
  Sex: Male

DRUGS (1)
  1. GATTEX [Suspect]
     Active Substance: TEDUGLUTIDE\WATER
     Indication: PRODUCT USED FOR UNKNOWN INDICATION
     Dosage: 0.3855 UNIT UNKNOWN, 1X/DAY:QD
     Route: 058
     Dates: start: 20180614, end: 20191001

REACTIONS (2)
  - Dialysis [Unknown]
  - Dehydration [Unknown]

NARRATIVE: CASE EVENT DATE: 20191001
